FAERS Safety Report 16057545 (Version 2)
Quarter: 2019Q2

REPORT INFORMATION
  Report Type: Spontaneous
  Country: US (occurrence: US)
  Receive Date: 20190311
  Receipt Date: 20190422
  Transmission Date: 20190711
  Serious: Yes (Other)
  Sender: FDA-Public Use
  Company Number: US-SA-2019SA062180

PATIENT
  Age: 56 Year
  Sex: Female
  Weight: 97.5 kg

DRUGS (3)
  1. TAXOL [Concomitant]
     Active Substance: PACLITAXEL
     Indication: PRODUCT USED FOR UNKNOWN INDICATION
     Dosage: UNK UNK, UNK
     Route: 065
     Dates: start: 20060518
  2. TAXOTERE [Suspect]
     Active Substance: DOCETAXEL
     Dosage: 200 MG, UNK
     Route: 042
     Dates: start: 20060612, end: 20060612
  3. TAXOTERE [Suspect]
     Active Substance: DOCETAXEL
     Indication: BREAST CANCER FEMALE
     Dosage: 200 UNK, UNK
     Route: 042
     Dates: start: 20060427, end: 20060427

REACTIONS (2)
  - Psychological trauma [Unknown]
  - Alopecia [Recovering/Resolving]

NARRATIVE: CASE EVENT DATE: 200605
